FAERS Safety Report 4340746-7 (Version None)
Quarter: 2004Q2

REPORT INFORMATION
  Report Type: 
  Country: None (occurrence: None)
  Receive Date: 20040413
  Receipt Date: 20040405
  Transmission Date: 20050107
  Serious: Yes (Hospitalization)
  Sender: FDA-Public Use
  Company Number: 2004-01429

PATIENT
  Age: 32 Year
  Sex: Male

DRUGS (3)
  1. COLCHICUM JTL LIQ [Suspect]
     Indication: GOUT
     Dosage: TOTAL CUMULATIVE DOSE OF 2 MG, UNK
  2. STEROIDS [Concomitant]
  3. IBUPROFEN [Concomitant]

REACTIONS (2)
  - GASTROINTESTINAL TOXICITY [None]
  - HEPATITIS ACUTE [None]
